FAERS Safety Report 20132458 (Version 3)
Quarter: 2021Q4

REPORT INFORMATION
  Report Type: Report from Study
  Country: CN (occurrence: None)
  Receive Date: 20211130
  Receipt Date: 20211221
  Transmission Date: 20220303
  Serious: Yes (Hospitalization)
  Sender: FDA-Public Use
  Company Number: 2021A781928

PATIENT
  Age: 18353 Day
  Sex: Male

DRUGS (13)
  1. DURVALUMAB [Suspect]
     Active Substance: DURVALUMAB
     Indication: Non-small cell lung cancer
     Route: 042
     Dates: start: 20210929, end: 20210929
  2. DURVALUMAB [Suspect]
     Active Substance: DURVALUMAB
     Indication: Non-small cell lung cancer
     Route: 042
     Dates: start: 20211022, end: 20211022
  3. DURVALUMAB [Suspect]
     Active Substance: DURVALUMAB
     Indication: Non-small cell lung cancer
     Route: 042
     Dates: start: 20211112, end: 20211112
  4. CARBOPLATIN [Suspect]
     Active Substance: CARBOPLATIN
     Indication: Non-small cell lung cancer
     Dosage: 6 AUC EVERY THREE WEEKS
     Route: 042
     Dates: start: 20210929, end: 20210929
  5. CARBOPLATIN [Suspect]
     Active Substance: CARBOPLATIN
     Indication: Non-small cell lung cancer
     Dosage: 6 AUC EVERY THREE WEEKS
     Route: 042
     Dates: start: 20211022, end: 20211022
  6. CARBOPLATIN [Suspect]
     Active Substance: CARBOPLATIN
     Indication: Non-small cell lung cancer
     Dosage: 6 AUC EVERY THREE WEEKS
     Route: 042
     Dates: start: 20211112, end: 20211112
  7. PACLITAXEL [Suspect]
     Active Substance: PACLITAXEL
     Indication: Non-small cell lung cancer
     Route: 042
     Dates: start: 20210929, end: 20210929
  8. PACLITAXEL [Suspect]
     Active Substance: PACLITAXEL
     Indication: Non-small cell lung cancer
     Route: 042
     Dates: start: 20211022, end: 20211022
  9. PACLITAXEL [Suspect]
     Active Substance: PACLITAXEL
     Indication: Non-small cell lung cancer
     Route: 042
     Dates: start: 20211112, end: 20211112
  10. DIAMMONIUM GLYCYRRHIZINATE ENTERIC-COATED CAPSULES [Concomitant]
     Indication: Transaminases increased
     Route: 048
     Dates: start: 20211004, end: 20211009
  11. MINERALS NOS/ANTIOXIDANTS NOS/OMEGA-3 FATTY ACIDS/GLUTATHIONE/TRACE EL [Concomitant]
     Indication: Transaminases increased
     Route: 042
     Dates: start: 20211009, end: 20211018
  12. MAGNESIUM ISOGLYCYRRHIZINATE INJECTION [Concomitant]
     Indication: Transaminases increased
     Route: 042
     Dates: start: 20211009, end: 20211018
  13. SILYMARIN CAPSULES [Concomitant]
     Indication: Transaminases increased
     Route: 042
     Dates: start: 20211017, end: 20211025

REACTIONS (1)
  - Drug-induced liver injury [Recovered/Resolved]

NARRATIVE: CASE EVENT DATE: 20211003
